FAERS Safety Report 9298217 (Version 1)
Quarter: 2013Q2

REPORT INFORMATION
  Report Type: Spontaneous
  Country: JP (occurrence: JP)
  Receive Date: 20130520
  Receipt Date: 20130520
  Transmission Date: 20140414
  Serious: Yes (Other)
  Sender: FDA-Public Use
  Company Number: JP-SANOFI-AVENTIS-2013SA050025

PATIENT
  Age: 73 Year
  Sex: Female

DRUGS (4)
  1. FLUOROURACIL [Suspect]
     Indication: RECTAL CANCER RECURRENT
     Dosage: RECEIVED 6 CYCLES
     Route: 065
     Dates: start: 201106
  2. OXALIPLATIN [Suspect]
     Indication: RECTAL CANCER RECURRENT
     Dosage: RECEIVED 6 CYCLES
     Route: 065
     Dates: start: 201106
  3. LEUCOVORIN [Suspect]
     Indication: RECTAL CANCER RECURRENT
     Dosage: RECEIVED 6 CYCLES
     Route: 065
     Dates: start: 201106
  4. BEVACIZUMAB [Concomitant]
     Indication: RECTAL CANCER RECURRENT
     Dosage: RECEIVED 4 CYCLES
     Dates: start: 201106

REACTIONS (1)
  - Bone marrow failure [Unknown]
